FAERS Safety Report 15039647 (Version 2)
Quarter: 2018Q2

REPORT INFORMATION
  Report Type: Spontaneous
  Country: RU (occurrence: RU)
  Receive Date: 20180620
  Receipt Date: 20180628
  Transmission Date: 20180711
  Serious: Yes (Hospitalization)
  Sender: FDA-Public Use
  Company Number: RU-B.I. PHARMACEUTICALS,INC./RIDGEFIELD-2018-BI-031328

PATIENT
  Age: 62 Year
  Sex: Female
  Weight: 115 kg

DRUGS (1)
  1. JARDIANCE [Suspect]
     Active Substance: EMPAGLIFLOZIN
     Indication: TYPE 2 DIABETES MELLITUS
     Route: 048
     Dates: start: 20180514, end: 20180608

REACTIONS (2)
  - Haematuria [Recovered/Resolved]
  - Leukocyturia [Recovered/Resolved]

NARRATIVE: CASE EVENT DATE: 20180528
